FAERS Safety Report 5690577-0 (Version None)
Quarter: 2008Q1

REPORT INFORMATION
  Report Type: 
  Country: None (occurrence: None)
  Receive Date: 20080331
  Receipt Date: 20080331
  Transmission Date: 20080703
  Serious: Yes (Other)
  Sender: FDA-Public Use
  Company Number: None

PATIENT
  Age: 38 Year
  Sex: Female
  Weight: 81.6475 kg

DRUGS (7)
  1. CYMBALTA [Suspect]
     Indication: DYSTHYMIC DISORDER
     Dosage: 30 MG 1 MONTH PO
     Route: 048
     Dates: start: 20070315, end: 20070615
  2. CYMBALTA [Suspect]
     Indication: FATIGUE
     Dosage: 30 MG 1 MONTH PO
     Route: 048
     Dates: start: 20070315, end: 20070615
  3. CYMBALTA [Suspect]
     Indication: MALAISE
     Dosage: 30 MG 1 MONTH PO
     Route: 048
     Dates: start: 20070315, end: 20070615
  4. MAXZIDE [Concomitant]
  5. SPIRONOLACTONE [Concomitant]
  6. XANAX [Concomitant]
  7. RITALIN [Concomitant]

REACTIONS (4)
  - ANXIETY [None]
  - FEAR [None]
  - PANIC ATTACK [None]
  - SUICIDAL IDEATION [None]
